FAERS Safety Report 7747940-3 (Version None)
Quarter: 2011Q3

REPORT INFORMATION
  Report Type: 
  Country: None (occurrence: None)
  Receive Date: 20110913
  Receipt Date: 20110707
  Transmission Date: 20111222
  Serious: No
  Sender: FDA-Public Use
  Company Number: US-ALLERGAN-1109156US

PATIENT
  Sex: Female

DRUGS (2)
  1. LATISSE [Suspect]
     Indication: GROWTH OF EYELASHES
     Dosage: 1 GTT, UNK
     Route: 061
     Dates: start: 20100701
  2. REFRESH TEARS [Concomitant]
     Dosage: UNK
     Route: 047

REACTIONS (3)
  - DRY EYE [None]
  - DRY MOUTH [None]
  - WRONG TECHNIQUE IN DRUG USAGE PROCESS [None]
